FAERS Safety Report 5163546-7 (Version None)
Quarter: 2006Q4

REPORT INFORMATION
  Report Type: 
  Country: None (occurrence: None)
  Receive Date: 20061124
  Receipt Date: 20061109
  Transmission Date: 20070319
  Serious: Yes (Death)
  Sender: FDA-Public Use
  Company Number: 2006138546

PATIENT
  Age: 43 Year

DRUGS (4)
  1. DOXEPIN HCL [Suspect]
  2. OXYCODONE HCL [Suspect]
  3. FLUOXETINE [Suspect]
  4. ALL OTHER THERAPEUTIC PRODUCTS (ALL OTHER THERAPEUTIC PRODUCTS) [Suspect]

REACTIONS (7)
  - CARDIAC ARREST [None]
  - DRUG INTERACTION [None]
  - INCORRECT DOSE ADMINISTERED [None]
  - INCORRECT ROUTE OF DRUG ADMINISTRATION [None]
  - MEDICATION ERROR [None]
  - RESPIRATORY ARREST [None]
  - WRONG DRUG ADMINISTERED [None]
